FAERS Safety Report 9674762 (Version 1)
Quarter: 2013Q4

REPORT INFORMATION
  Report Type: Spontaneous
  Country: US (occurrence: US)
  Receive Date: 20131107
  Receipt Date: 20131107
  Transmission Date: 20140711
  Serious: Yes (Other)
  Sender: FDA-Public Use
  Company Number: US-BANPHARM-20131848

PATIENT
  Age: 23 Month
  Sex: Male
  Weight: 13.61 kg

DRUGS (1)
  1. ALEVE LIQUID GELS 220 MG [Suspect]
     Dosage: 1 DF, ONCE,
     Route: 048
     Dates: start: 20131025, end: 20131025

REACTIONS (3)
  - Choking [Recovered/Resolved]
  - Vomiting [Recovered/Resolved]
  - Accidental exposure to product by child [Unknown]
